FAERS Safety Report 21162707 (Version 1)
Quarter: 2022Q3

REPORT INFORMATION
  Report Type: Spontaneous
  Country: US (occurrence: US)
  Receive Date: 20220802
  Receipt Date: 20220802
  Transmission Date: 20221026
  Serious: No
  Sender: FDA-Public Use
  Company Number: US-PFIZER INC-202201021127

PATIENT
  Age: 29 Year
  Sex: Male
  Weight: 136.08 kg

DRUGS (2)
  1. PAXLOVID [Suspect]
     Active Substance: NIRMATRELVIR\RITONAVIR
     Indication: COVID-19 treatment
     Dosage: UNK
     Dates: start: 20220727
  2. LORATADINE [Concomitant]
     Active Substance: LORATADINE
     Dosage: UNK

REACTIONS (5)
  - Intentional product misuse [Unknown]
  - Vomiting [Unknown]
  - Dysgeusia [Unknown]
  - Product taste abnormal [Unknown]
  - Heart rate increased [Unknown]
